FAERS Safety Report 6179961-9 (Version None)
Quarter: 2009Q2

REPORT INFORMATION
  Report Type: 
  Country: None (occurrence: None)
  Receive Date: 20090505
  Receipt Date: 20090417
  Transmission Date: 20091009
  Serious: Yes (Hospitalization)
  Sender: FDA-Public Use
  Company Number: TW-GENENTECH-282168

PATIENT
  Sex: Male

DRUGS (3)
  1. BEVACIZUMAB [Suspect]
     Indication: RENAL CELL CARCINOMA
     Dosage: 400 MG, QOW
     Route: 042
     Dates: start: 20081020
  2. INTERFERON ALFA-2A [Suspect]
     Indication: RENAL CELL CARCINOMA
     Dosage: 3 MIU, 3/WEEK
     Route: 058
     Dates: start: 20081020, end: 20081024
  3. INTERFERON ALFA-2A [Suspect]
     Dosage: 9 MIU, 3/WEEK
     Route: 058
     Dates: start: 20081027

REACTIONS (1)
  - HIP FRACTURE [None]
